FAERS Safety Report 5000014-7 (Version None)
Quarter: 2006Q2

REPORT INFORMATION
  Report Type: 
  Country: None (occurrence: None)
  Receive Date: 20060509
  Receipt Date: 20060430
  Transmission Date: 20061013
  Serious: Yes (Life-Threatening)
  Sender: FDA-Public Use
  Company Number: 2005-135242-NL

PATIENT
  Age: 44 Year
  Sex: Female

DRUGS (2)
  1. MIRTAZAPINE [Suspect]
     Indication: DEPRESSION
     Dosage: 30 MG ORAL
     Route: 048
     Dates: start: 20050922, end: 20051011
  2. ALPRAZOLAM [Concomitant]

REACTIONS (3)
  - FLUID RETENTION [None]
  - GENERALISED OEDEMA [None]
  - SWELLING FACE [None]
